FAERS Safety Report 9807901 (Version 2)
Quarter: 2014Q1

REPORT INFORMATION
  Report Type: Spontaneous
  Country: FR (occurrence: FR)
  Receive Date: 20140110
  Receipt Date: 20140117
  Transmission Date: 20141002
  Serious: Yes (Death)
  Sender: FDA-Public Use
  Company Number: FR-PFIZER INC-2014006515

PATIENT
  Age: 64 Year
  Sex: Male

DRUGS (10)
  1. CORDARONE [Suspect]
     Indication: ARRHYTHMIA
     Dosage: UNK
     Route: 048
     Dates: start: 20131115, end: 20131128
  2. CORDARONE [Suspect]
     Indication: ARRHYTHMIA
     Dosage: UNK
     Route: 042
     Dates: start: 20131108, end: 20131115
  3. CORDARONE [Suspect]
     Dosage: UNK
     Route: 042
     Dates: end: 20131128
  4. ATORVASTATIN [Concomitant]
     Indication: HYPERCHOLESTEROLAEMIA
     Dosage: UNK
  5. BISOPROLOL [Concomitant]
     Indication: CARDIOVASCULAR DISORDER
     Dosage: UNK
  6. DIGOXIN [Concomitant]
     Indication: CARDIOVASCULAR DISORDER
     Dosage: UNK
  7. NISISCO [Concomitant]
     Indication: CARDIOVASCULAR DISORDER
     Dosage: UNK
  8. ENOXAPARIN SODIUM [Concomitant]
     Indication: PAIN
     Dosage: UNK
  9. SKENAN [Concomitant]
     Indication: PAIN
     Dosage: UNK
  10. ACTISKENAN [Concomitant]
     Indication: PAIN
     Dosage: UNK

REACTIONS (4)
  - Cardiac arrest [Fatal]
  - Respiratory arrest [Fatal]
  - Torsade de pointes [Fatal]
  - Multi-organ failure [Fatal]
